FAERS Safety Report 6327693-6 (Version None)
Quarter: 2009Q3

REPORT INFORMATION
  Report Type: 
  Country: None (occurrence: None)
  Receive Date: 20090825
  Receipt Date: 20090817
  Transmission Date: 20100115
  Serious: Yes (Congenital Anomaly, Other)
  Sender: FDA-Public Use
  Company Number: PHHY2009GB34875

PATIENT
  Sex: Female

DRUGS (1)
  1. TEGRETOL [Suspect]
     Dosage: MATERNAL DOSE: 200 MG DAILY
     Route: 064

REACTIONS (1)
  - FOETAL ANTICONVULSANT SYNDROME [None]
